FAERS Safety Report 19303789 (Version 2)
Quarter: 2021Q3

REPORT INFORMATION
  Report Type: Spontaneous
  Country: US (occurrence: US)
  Receive Date: 20210525
  Receipt Date: 20210823
  Transmission Date: 20211014
  Serious: Yes (Hospitalization)
  Sender: FDA-Public Use
  Company Number: US-BRISTOL-MYERS SQUIBB COMPANY-BMS-2021-048907

PATIENT
  Age: 75 Year
  Sex: Male
  Weight: 79.37 kg

DRUGS (1)
  1. OPDIVO [Suspect]
     Active Substance: NIVOLUMAB
     Indication: URETHRAL CANCER
     Dosage: UNK UNK, Q2WK
     Route: 050
     Dates: start: 201705

REACTIONS (2)
  - Fatigue [Unknown]
  - Vision blurred [Not Recovered/Not Resolved]
